FAERS Safety Report 4920191-3 (Version None)
Quarter: 2006Q1

REPORT INFORMATION
  Report Type: 
  Country: None (occurrence: None)
  Receive Date: 20060216
  Receipt Date: 20060213
  Transmission Date: 20060701
  Serious: Yes (Death, Hospitalization)
  Sender: FDA-Public Use
  Company Number: A001-320-844

PATIENT
  Age: 58 Year
  Sex: Male
  Weight: 72.5 kg

DRUGS (12)
  1. DONEPEZIL HCL [Suspect]
     Indication: VASCULAR DEMENTIA
     Dosage: 5 MG, 1 IN 1 D, ORAL
     Route: 048
     Dates: start: 20050421, end: 20060209
  2. DONEPEZIL HCL [Suspect]
     Indication: VASCULAR DEMENTIA
     Dosage: DOUBLE BLIND, 1 IN 1 D, ORAL
     Route: 048
     Dates: start: 20041103, end: 20050420
  3. METFORMIN HCL [Concomitant]
  4. GLICLAZIDE (GLICLAZIDE) [Concomitant]
  5. NOVOLIN 85/15 [Concomitant]
  6. ASPIRIN [Concomitant]
  7. HYDROCHLOROTHIAZIDE [Concomitant]
  8. ENALAPRIL MALEATE [Concomitant]
  9. ADALAT XL (NIFEDIPINE) [Concomitant]
  10. ATENOLOL [Concomitant]
  11. FLUOXETINE [Concomitant]
  12. SIMVASTATIN [Concomitant]

REACTIONS (8)
  - CEREBRAL HAEMORRHAGE [None]
  - CONDITION AGGRAVATED [None]
  - CONTUSION [None]
  - DIABETES MELLITUS INADEQUATE CONTROL [None]
  - FALL [None]
  - HEAD INJURY [None]
  - HYPERTENSION [None]
  - SUBDURAL HAEMORRHAGE [None]
